FAERS Safety Report 5796478-1 (Version None)
Quarter: 2008Q3

REPORT INFORMATION
  Report Type: 
  Country: None (occurrence: None)
  Receive Date: 20080701
  Receipt Date: 20080625
  Transmission Date: 20090109
  Serious: Yes (Other)
  Sender: FDA-Public Use
  Company Number: PHEH2008US05346

PATIENT

DRUGS (8)
  1. TEGRETOL-XR [Suspect]
     Indication: CONVULSION
     Dosage: 400 MG, BID
  2. AMITRIPTYLINE HCL [Concomitant]
     Dosage: 25 MG, QHS
  3. PHENOBARBITAL TAB [Concomitant]
     Dosage: 64.8 MG 1/2 TAB QAM + QHS
  4. VITAMIN CAP [Concomitant]
  5. POTASSIUM CHLORIDE [Concomitant]
     Dosage: 10 MEQ, QD
  6. KEPPRA [Concomitant]
     Dosage: 500 MG, QHS
  7. REQUIP [Concomitant]
     Dosage: 0.5 MG 2 TABS QHS
  8. LASIX [Concomitant]
     Dosage: 25 MG, QD

REACTIONS (5)
  - BURNS SECOND DEGREE [None]
  - EATING DISORDER [None]
  - INSOMNIA [None]
  - MALAISE [None]
  - PHOTOSENSITIVITY REACTION [None]
